FAERS Safety Report 6460658-2 (Version None)
Quarter: 2009Q4

REPORT INFORMATION
  Report Type: 
  Country: None (occurrence: None)
  Receive Date: 20091123
  Receipt Date: 20091109
  Transmission Date: 20100525
  Serious: Yes (Hospitalization)
  Sender: FDA-Public Use
  Company Number: A-NJ2009-23758

PATIENT
  Age: 60 Year
  Sex: Female

DRUGS (14)
  1. TRACLEER [Suspect]
     Indication: PULMONARY ARTERIAL HYPERTENSION
     Dosage: 125 MG, BID, ORAL
     Route: 048
     Dates: start: 20020213
  2. FOLIC ACID [Concomitant]
  3. AMITRIPTYLINE HYDROCHLORIDE [Concomitant]
  4. EVISTA [Concomitant]
  5. ZANTAC 150 [Concomitant]
  6. TEMAZEPAM [Concomitant]
  7. SPIRONOLACTONE [Concomitant]
  8. FOSAMAX [Concomitant]
  9. NEUROTIN (ACETYLCARNITINE HYDROCHLORIDE) [Concomitant]
  10. NALTREXONE (NALTREXONE) [Concomitant]
  11. CALCIUM (CALCIUM) [Concomitant]
  12. VITAMIN B12 (COBAMAMIDE) [Concomitant]
  13. ASPIRIN [Concomitant]
  14. XOPENEX [Concomitant]

REACTIONS (12)
  - ABDOMINAL PAIN [None]
  - CIRRHOSIS ALCOHOLIC [None]
  - DIARRHOEA [None]
  - FATIGUE [None]
  - HEPATIC FAILURE [None]
  - IMMUNE SYSTEM DISORDER [None]
  - MALAISE [None]
  - NAUSEA [None]
  - OSTEOPOROSIS [None]
  - URINARY TRACT INFECTION [None]
  - VOMITING [None]
  - WEIGHT INCREASED [None]
